FAERS Safety Report 21642605 (Version 2)
Quarter: 2022Q4

REPORT INFORMATION
  Report Type: Report from Study
  Country: US (occurrence: US)
  Receive Date: 20221125
  Receipt Date: 20221223
  Transmission Date: 20230113
  Serious: Yes (Other)
  Sender: FDA-Public Use
  Company Number: US-BAUSCHBL-2022BNL002198

PATIENT
  Age: 89 Year
  Sex: Female
  Weight: 76.272 kg

DRUGS (2)
  1. LOTEMAX SM [Suspect]
     Active Substance: LOTEPREDNOL ETABONATE
     Indication: Corneal implant
     Dosage: ONE DROP IN LEFT EYE, ONCE A DAY
     Route: 047
     Dates: start: 2016
  2. DORZOLAMIDE [Concomitant]
     Active Substance: DORZOLAMIDE
     Indication: Product used for unknown indication
     Dosage: STARTED A COUPLE OF YEARS AGO

REACTIONS (1)
  - Blindness [Not Recovered/Not Resolved]
